FAERS Safety Report 8990336 (Version 1)
Quarter: 2012Q4

REPORT INFORMATION
  Report Type: 
  Country: GB (occurrence: GB)
  Receive Date: 20121228
  Receipt Date: 20121228
  Transmission Date: 20130627
  Serious: Yes (Other)
  Sender: FDA-Public Use
  Company Number: GB-CELGENEUS-167-50794-12122281

PATIENT

DRUGS (6)
  1. VIDAZA [Suspect]
     Indication: ACUTE MYELOID LEUKEMIA
     Route: 065
     Dates: start: 200606, end: 201003
  2. VIDAZA [Suspect]
     Indication: MDS
  3. SODIUM VALPROATE [Concomitant]
     Indication: ACUTE MYELOID LEUKEMIA
     Route: 065
     Dates: start: 200606, end: 201003
  4. SODIUM VALPROATE [Concomitant]
     Indication: MDS
  5. THEOPHYLLINE [Concomitant]
     Indication: ACUTE MYELOID LEUKEMIA
     Route: 065
     Dates: start: 200606, end: 201003
  6. THEOPHYLLINE [Concomitant]
     Indication: MDS

REACTIONS (23)
  - Cough [Unknown]
  - Confusional state [Unknown]
  - Anaemia [Unknown]
  - Thrombocytopenia [Unknown]
  - Neutropenia [Unknown]
  - Leukopenia [Unknown]
  - Pyrexia [Unknown]
  - Fatigue [Unknown]
  - Nausea [Unknown]
  - Decreased appetite [Unknown]
  - Constipation [Unknown]
  - Vomiting [Unknown]
  - Diarrhoea [Unknown]
  - Headache [Unknown]
  - Somnolence [Unknown]
  - Dizziness [Unknown]
  - Abdominal pain [Unknown]
  - Dyspnoea [Unknown]
  - Drug intolerance [Unknown]
  - Injection site erythema [Unknown]
  - No therapeutic response [Unknown]
  - Acute myeloid leukaemia [Unknown]
  - Myelodysplastic syndrome [Unknown]
